FAERS Safety Report 26118236 (Version 1)
Quarter: 2025Q4

REPORT INFORMATION
  Report Type: Spontaneous
  Country: US (occurrence: None)
  Receive Date: 20251203
  Receipt Date: 20251203
  Transmission Date: 20260118
  Serious: Yes (Death)
  Sender: AMERICAN REGENT
  Company Number: US-AMERICAN REGENT INC-2025004215

PATIENT
  Age: 24 Year
  Sex: Female

DRUGS (2)
  1. ACETYLCYSTEINE [Suspect]
     Active Substance: ACETYLCYSTEINE
     Indication: Toxicity to various agents
     Dosage: DOUBLE DOSE NAC
     Route: 065
  2. FOMEPIZOLE [Suspect]
     Active Substance: FOMEPIZOLE
     Indication: Toxicity to various agents
     Dosage: 3 STANDARD DOSES (TOTAL DOSE 2170 MG)
     Route: 065

REACTIONS (4)
  - Drug ineffective [Fatal]
  - Drug ineffective for unapproved indication [Fatal]
  - Toxicity to various agents [Fatal]
  - Product use in unapproved indication [Unknown]
